FAERS Safety Report 8937034 (Version 2)
Quarter: 2013Q2

REPORT INFORMATION
  Report Type: Spontaneous
  Country: CN (occurrence: CN)
  Receive Date: 20121130
  Receipt Date: 20130419
  Transmission Date: 20140414
  Serious: Yes (Other)
  Sender: FDA-Public Use
  Company Number: PHHY2012CN109362

PATIENT
  Age: 23 Year
  Sex: Female

DRUGS (4)
  1. LOXOPROFEN [Suspect]
     Indication: STILL^S DISEASE ADULT ONSET
     Dosage: 60 MG, Q8H
  2. METHYLPREDNISOLONE SANDOZ [Suspect]
     Indication: STILL^S DISEASE ADULT ONSET
     Dosage: 40 MG, QD
  3. METHYLPREDNISOLONE SANDOZ [Suspect]
     Dosage: 40 MG, BID
  4. METHYLPREDNISOLONE SANDOZ [Suspect]
     Dosage: 80 MG, BID

REACTIONS (12)
  - Histiocytosis haematophagic [Recovered/Resolved]
  - Lymphoma [Recovered/Resolved]
  - Gastric ulcer [Recovered/Resolved]
  - Pyrexia [Recovered/Resolved]
  - Serum ferritin increased [Recovered/Resolved]
  - Neutropenia [Recovered/Resolved]
  - Leukopenia [Recovered/Resolved]
  - Thrombocytopenia [Recovered/Resolved]
  - Transaminases decreased [Recovered/Resolved]
  - Abdominal pain upper [Recovered/Resolved]
  - Appetite disorder [Recovered/Resolved]
  - Gastritis [Recovered/Resolved]
